FAERS Safety Report 7347735-9 (Version None)
Quarter: 2011Q1

REPORT INFORMATION
  Report Type: 
  Country: None (occurrence: None)
  Receive Date: 20110311
  Receipt Date: 20110302
  Transmission Date: 20110831
  Serious: Yes (Hospitalization, Other)
  Sender: FDA-Public Use
  Company Number: US-AMGEN-USASP2011007381

PATIENT
  Age: 21 Year
  Sex: Male

DRUGS (2)
  1. PROCRIT [Suspect]
     Indication: SICKLE CELL ANAEMIA
  2. EPOGEN [Suspect]
     Indication: NEPHROGENIC ANAEMIA
     Dosage: 10000 UNK, UNK
     Route: 042
     Dates: end: 20110201

REACTIONS (6)
  - MENTAL STATUS CHANGES [None]
  - THERAPEUTIC RESPONSE DECREASED [None]
  - SERUM FERRITIN INCREASED [None]
  - PAIN [None]
  - REFRACTORY ANAEMIA [None]
  - DRUG INEFFECTIVE [None]
